FAERS Safety Report 8667488 (Version 3)
Quarter: 2013Q4

REPORT INFORMATION
  Report Type: Report from Study
  Country: US (occurrence: US)
  Receive Date: 20120717
  Receipt Date: 20131101
  Transmission Date: 20140711
  Serious: Yes (Hospitalization)
  Sender: FDA-Public Use
  Company Number: US-MSD-1207USA002017

PATIENT
  Age: 63 Year
  Sex: Male
  Weight: 102.7 kg

DRUGS (2)
  1. VORINOSTAT [Suspect]
     Indication: GLIOBLASTOMA MULTIFORME
     Dosage: 300 MG, Q5W
     Dates: start: 20120604, end: 20120627
  2. TEMOZOLOMIDE [Suspect]
     Indication: GLIOBLASTOMA MULTIFORME
     Dosage: 75 MG/M2, QD
     Route: 048
     Dates: start: 20120604, end: 20120627

REACTIONS (5)
  - Hypotension [Recovering/Resolving]
  - Muscular weakness [Recovering/Resolving]
  - Atrial tachycardia [Recovering/Resolving]
  - Dehydration [Recovering/Resolving]
  - Blood lactic acid increased [Recovering/Resolving]
